FAERS Safety Report 14045100 (Version 1)
Quarter: 2017Q4

REPORT INFORMATION
  Report Type: Spontaneous
  Country: US (occurrence: US)
  Receive Date: 20171005
  Receipt Date: 20171005
  Transmission Date: 20180321
  Serious: No
  Sender: FDA-Public Use
  Company Number: US-HORIZON-DUE-0168-2017

PATIENT
  Age: 64 Year
  Sex: Male

DRUGS (3)
  1. ALEVE [Suspect]
     Active Substance: NAPROXEN SODIUM
     Indication: SERONEGATIVE ARTHRITIS
     Dates: start: 1988, end: 2017
  2. IBUPROFEN. [Suspect]
     Active Substance: IBUPROFEN
     Indication: SERONEGATIVE ARTHRITIS
     Dates: start: 1988, end: 2017
  3. DUEXIS [Suspect]
     Active Substance: FAMOTIDINE\IBUPROFEN
     Indication: SERONEGATIVE ARTHRITIS
     Dates: start: 1988, end: 2017

REACTIONS (1)
  - Drug ineffective [Unknown]
